FAERS Safety Report 7178910-4 (Version None)
Quarter: 2010Q4

REPORT INFORMATION
  Report Type: 
  Country: None (occurrence: None)
  Receive Date: 20101217
  Receipt Date: 20101217
  Transmission Date: 20110411
  Serious: Yes (Other)
  Sender: FDA-Public Use
  Company Number: None

PATIENT
  Sex: Male
  Weight: 106.8 kg

DRUGS (10)
  1. INTEGRILIN [Suspect]
     Indication: ANGINA PECTORIS
     Dosage: 180MCG BOLUS THEN 2MCG/KG/MIN X1, THEN CONTINUOUS IV
     Route: 042
     Dates: start: 20091208, end: 20091208
  2. ASPIRIN [Concomitant]
  3. LANTUS [Concomitant]
  4. METFORMIN HCL [Concomitant]
  5. CRESTOR [Concomitant]
  6. COREG [Concomitant]
  7. LISINOPRIL [Concomitant]
  8. PLAVIX [Concomitant]
  9. HEPARIN [Concomitant]
  10. NITROGLYCERIN [Concomitant]

REACTIONS (1)
  - PLATELET COUNT DECREASED [None]
